FAERS Safety Report 8663058 (Version 3)
Quarter: 2013Q4

REPORT INFORMATION
  Report Type: Spontaneous
  Country: US (occurrence: US)
  Receive Date: 20120713
  Receipt Date: 20131101
  Transmission Date: 20140711
  Serious: No
  Sender: FDA-Public Use
  Company Number: US-009507513-2012SP026072

PATIENT
  Age: 54 Year
  Sex: Female

DRUGS (2)
  1. DULERA [Suspect]
     Indication: ASTHMA
     Dosage: 2 DF, BID
     Route: 055
  2. SINGULAIR [Concomitant]

REACTIONS (2)
  - Chest discomfort [Not Recovered/Not Resolved]
  - Expired drug administered [Unknown]
